FAERS Safety Report 6164701-X (Version None)
Quarter: 2009Q2

REPORT INFORMATION
  Report Type: 
  Country: None (occurrence: None)
  Receive Date: 20090423
  Receipt Date: 20090415
  Transmission Date: 20091009
  Serious: Yes (Other)
  Sender: FDA-Public Use
  Company Number: US-ROCHE-627644

PATIENT
  Sex: Female
  Weight: 99.8 kg

DRUGS (5)
  1. CAPECITABINE [Suspect]
     Indication: BREAST CANCER
     Route: 048
     Dates: start: 20090219, end: 20090314
  2. ZOMETA [Concomitant]
  3. ATENOLOL [Concomitant]
  4. JANUVIA [Concomitant]
  5. LYRICA [Concomitant]

REACTIONS (1)
  - DISEASE PROGRESSION [None]
